FAERS Safety Report 11399459 (Version 2)
Quarter: 2015Q3

REPORT INFORMATION
  Report Type: Spontaneous
  Country: US (occurrence: None)
  Receive Date: 20150819
  Receipt Date: 20150819
  Transmission Date: 20151125
  Serious: Yes (Other)
  Sender: FDA-Public Use
  Company Number: None

PATIENT
  Age: 65 Year
  Sex: Female
  Weight: 56.7 kg

DRUGS (2)
  1. CLONAZEPAM. [Concomitant]
     Active Substance: CLONAZEPAM
  2. CLONAZEPAM. [Suspect]
     Active Substance: CLONAZEPAM
     Indication: ESSENTIAL TREMOR
     Dosage: 1/2 ?FOUR TIMES DAILY?TAKEN BY MOUTH
     Route: 048
     Dates: start: 20150725, end: 20150725

REACTIONS (1)
  - Malaise [None]

NARRATIVE: CASE EVENT DATE: 20150725
